FAERS Safety Report 14950933 (Version 1)
Quarter: 2018Q2

REPORT INFORMATION
  Report Type: Spontaneous
  Country: SE (occurrence: SE)
  Receive Date: 20180530
  Receipt Date: 20180530
  Transmission Date: 20180711
  Serious: Yes (Hospitalization)
  Sender: FDA-Public Use
  Company Number: SE-BAUSCH-BL-2018-015012

PATIENT
  Age: 52 Year
  Sex: Female

DRUGS (3)
  1. DALACIN [Suspect]
     Active Substance: CLINDAMYCIN
     Indication: ERYSIPELAS
     Route: 065
     Dates: start: 2018
  2. KAVEPENIN [Suspect]
     Active Substance: PHENOXYMETHYLPENICILLIN CALCIUM
     Indication: ERYSIPELAS
     Route: 065
     Dates: end: 2018
  3. CLINDAMYCIN. [Suspect]
     Active Substance: CLINDAMYCIN
     Indication: ERYSIPELAS
     Route: 065

REACTIONS (15)
  - Fatigue [Not Recovered/Not Resolved]
  - Pharyngeal paraesthesia [Not Recovered/Not Resolved]
  - Abdominal distension [Not Recovered/Not Resolved]
  - Drug ineffective [Unknown]
  - Pharyngeal oedema [Not Recovered/Not Resolved]
  - Abdominal pain upper [Not Recovered/Not Resolved]
  - Condition aggravated [Unknown]
  - Erysipelas [Unknown]
  - Dyspnoea [Not Recovered/Not Resolved]
  - Mental disorder [Unknown]
  - Disease recurrence [Unknown]
  - Dysphagia [Not Recovered/Not Resolved]
  - Throat tightness [Not Recovered/Not Resolved]
  - Rash [Not Recovered/Not Resolved]
  - Hypoaesthesia [Not Recovered/Not Resolved]

NARRATIVE: CASE EVENT DATE: 2018
